FAERS Safety Report 12954800 (Version 1)
Quarter: 2016Q4

REPORT INFORMATION
  Report Type: Spontaneous
  Country: US (occurrence: US)
  Receive Date: 20161117
  Receipt Date: 20161117
  Transmission Date: 20170207
  Serious: Yes (Hospitalization)
  Sender: FDA-Public Use
  Company Number: None

PATIENT
  Age: 66 Year
  Sex: Female

DRUGS (9)
  1. DOCUSATE [Concomitant]
     Active Substance: DOCUSATE
  2. POMALYST [Suspect]
     Active Substance: POMALIDOMIDE
     Indication: PLASMA CELL MYELOMA
     Route: 048
     Dates: start: 20161024, end: 20161104
  3. NORCO [Concomitant]
     Active Substance: ACETAMINOPHEN\HYDROCODONE BITARTRATE
  4. CYCLOPHOSPHAMIDE. [Concomitant]
     Active Substance: CYCLOPHOSPHAMIDE
  5. DEXAMETHASONE. [Concomitant]
     Active Substance: DEXAMETHASONE
  6. ONDANSETRON [Concomitant]
     Active Substance: ONDANSETRON
  7. ACYCLOVIR. [Concomitant]
     Active Substance: ACYCLOVIR
  8. BENZONATATE. [Concomitant]
     Active Substance: BENZONATATE
  9. BISACODYL. [Concomitant]
     Active Substance: BISACODYL

REACTIONS (2)
  - Therapy cessation [None]
  - Febrile neutropenia [None]

NARRATIVE: CASE EVENT DATE: 20161104
